FAERS Safety Report 10528302 (Version 1)
Quarter: 2014Q4

REPORT INFORMATION
  Report Type: Spontaneous
  Country: NO (occurrence: NO)
  Receive Date: 20141020
  Receipt Date: 20141020
  Transmission Date: 20150528
  Serious: Yes (Life-Threatening, Hospitalization)
  Sender: FDA-Public Use
  Company Number: NO-ACTAVIS-2014-22068

PATIENT
  Age: 64 Year
  Sex: Male

DRUGS (3)
  1. TRAMADOL (UNKNOWN) [Suspect]
     Active Substance: TRAMADOL
     Indication: PAIN
     Dosage: 1 DF, TOTAL; AS NEEDED; ONE DF TAKEN THE EVENING THAT THE ADVERSE EVENT OCCURED.
     Route: 048
     Dates: end: 20140917
  2. CIPROXIN [Interacting]
     Active Substance: CIPROFLOXACIN
     Indication: BRONCHITIS
     Dosage: UNK
     Route: 048
     Dates: end: 20140913
  3. EXFORGE [Interacting]
     Active Substance: AMLODIPINE BESYLATE\VALSARTAN
     Indication: HYPERTENSION
     Dosage: UNK
     Route: 048
     Dates: end: 20140917

REACTIONS (10)
  - Circulatory collapse [None]
  - Listless [None]
  - Hypoxia [None]
  - Oedema peripheral [Unknown]
  - Fall [None]
  - Cardiac arrest [Unknown]
  - Lethargy [None]
  - Hyponatraemia [Unknown]
  - Respiratory arrest [None]
  - Weight increased [None]

NARRATIVE: CASE EVENT DATE: 201409
